FAERS Safety Report 23974278 (Version 1)
Quarter: 2024Q2

REPORT INFORMATION
  Report Type: Spontaneous
  Country: US (occurrence: US)
  Receive Date: 20240614
  Receipt Date: 20240614
  Transmission Date: 20240716
  Serious: Yes (Life-Threatening, Hospitalization)
  Sender: FDA-Public Use
  Company Number: US-STRIDES ARCOLAB LIMITED-2024SP002253

PATIENT
  Age: 2 Year
  Sex: Male

DRUGS (21)
  1. TACROLIMUS [Suspect]
     Active Substance: TACROLIMUS
     Indication: Haemophagocytic lymphohistiocytosis
     Dosage: 0.17 MILLIGRAM/KILOGRAM, PER DAY
     Route: 048
  2. TACROLIMUS [Suspect]
     Active Substance: TACROLIMUS
     Dosage: UNK
     Route: 048
  3. TACROLIMUS [Suspect]
     Active Substance: TACROLIMUS
     Dosage: 0.03 MILLIGRAM/KILOGRAM, PER DAY
     Route: 048
  4. ETOPOSIDE [Suspect]
     Active Substance: ETOPOSIDE
     Indication: Haemophagocytic lymphohistiocytosis
     Dosage: 150 MILLIGRAM/SQ. METER, PER WEEK, FOR 8 DOSES
     Route: 065
  5. PREDNISOLONE [Suspect]
     Active Substance: PREDNISOLONE
     Indication: Haemophagocytic lymphohistiocytosis
     Dosage: 2 MILLIGRAM/KILOGRAM, PER DAY
     Route: 065
  6. HYDROCORTISONE [Suspect]
     Active Substance: HYDROCORTISONE\HYDROCORTISONE ACETATE
     Indication: Haemophagocytic lymphohistiocytosis
     Dosage: 5 MILLIGRAM, BID
     Route: 065
  7. METHOTREXATE [Suspect]
     Active Substance: METHOTREXATE
     Indication: Still^s disease
     Dosage: UNK
     Route: 065
  8. METHYLPREDNISOLONE [Suspect]
     Active Substance: METHYLPREDNISOLONE
     Indication: Haemophagocytic lymphohistiocytosis
     Dosage: 10 MILLIGRAM/KILOGRAM, PER DAY
     Route: 042
  9. DEXAMETHASONE [Suspect]
     Active Substance: DEXAMETHASONE
     Indication: Haemophagocytic lymphohistiocytosis
     Dosage: 1.5 MILLIGRAM/KILOGRAM, PER DAY
     Route: 042
  10. EMAPALUMAB [Suspect]
     Active Substance: EMAPALUMAB
     Indication: Haemophagocytic lymphohistiocytosis
     Dosage: 1 MILLIGRAM/KILOGRAM, 2 TIMES A WEEK
     Route: 065
  11. EMAPALUMAB [Suspect]
     Active Substance: EMAPALUMAB
     Dosage: 3 MILLIGRAM/KILOGRAM, 2 TIMES A WEEK
     Route: 065
  12. EMAPALUMAB [Suspect]
     Active Substance: EMAPALUMAB
     Dosage: 6 MILLIGRAM/KILOGRAM, 2 TIMES A WEEK
     Route: 065
  13. EMAPALUMAB [Suspect]
     Active Substance: EMAPALUMAB
     Dosage: 10 MILLIGRAM/KILOGRAM, 2 TIMES A WEEK
     Route: 065
  14. CYCLOSPORINE [Suspect]
     Active Substance: CYCLOSPORINE
     Indication: Haemophagocytic lymphohistiocytosis
     Dosage: UNK
     Route: 042
  15. ANAKINRA [Suspect]
     Active Substance: ANAKINRA
     Indication: Haemophagocytic lymphohistiocytosis
     Dosage: UNK
     Route: 042
  16. ANAKINRA [Suspect]
     Active Substance: ANAKINRA
     Dosage: 25 MILLIGRAM/KILOGRAM, PER DAY
     Route: 042
  17. ANAKINRA [Suspect]
     Active Substance: ANAKINRA
     Dosage: 37.5 MILLIGRAM/KILOGRAM, PER DAY
     Route: 042
  18. ANAKINRA [Suspect]
     Active Substance: ANAKINRA
     Dosage: 46 MILLIGRAM/KILOGRAM, PER DAY
     Route: 042
  19. ANAKINRA [Suspect]
     Active Substance: ANAKINRA
     Dosage: 2 MILLIGRAM/KILOGRAM, PER DAY
     Route: 042
  20. HUMAN IMMUNOGLOBULIN G [Suspect]
     Active Substance: HUMAN IMMUNOGLOBULIN G
     Indication: Immune system disorder
     Dosage: UNK, FIVE DOSES
     Route: 042
  21. FUROSEMIDE [Concomitant]
     Active Substance: FUROSEMIDE
     Indication: Pulmonary oedema
     Dosage: UNK
     Route: 065

REACTIONS (5)
  - Pneumocystis jirovecii pneumonia [Unknown]
  - Adenovirus infection [Unknown]
  - Condition aggravated [Unknown]
  - Drug ineffective [Unknown]
  - Off label use [Unknown]
